FAERS Safety Report 4549587-9 (Version None)
Quarter: 2005Q1

REPORT INFORMATION
  Report Type: 
  Country: None (occurrence: None)
  Receive Date: 20050111
  Receipt Date: 20041230
  Transmission Date: 20050727
  Serious: Yes (Life-Threatening, Other)
  Sender: FDA-Public Use
  Company Number: FR-NOVOPROD-241419

PATIENT
  Age: 86 Year
  Sex: Male
  Weight: 79 kg

DRUGS (10)
  1. ACTRAPID [Suspect]
     Indication: DIABETES MELLITUS
     Dosage: .16 IU, QD
     Route: 042
  2. CALCIUM GLUCONATE [Concomitant]
     Dosage: 2 TAB, QD
  3. ZINC [Concomitant]
  4. SELENIUM TRACE METAL ADDITIVE [Concomitant]
  5. SODIUM CHLORIDE [Concomitant]
  6. POTASSIUM CHLORIDE [Concomitant]
  7. CORDARONE [Concomitant]
     Dosage: 3 AMP PER DAY INTRAVENOUS
     Route: 042
  8. HEPARIN [Concomitant]
     Dosage: 3000 IU/24 HOURS
  9. MAGNESIUM [Concomitant]
     Dosage: MAGNESIUM CHLORIDE
  10. AMINO ACIDS [Concomitant]

REACTIONS (2)
  - HYPOGLYCAEMIC COMA [None]
  - RESPIRATORY DISTRESS [None]
